FAERS Safety Report 7380403-6 (Version None)
Quarter: 2011Q1

REPORT INFORMATION
  Report Type: 
  Country: None (occurrence: None)
  Receive Date: 20110318
  Receipt Date: 20110309
  Transmission Date: 20110831
  Serious: Yes (Hospitalization)
  Sender: FDA-Public Use
  Company Number: 2011MA002361

PATIENT
  Age: 79 Year
  Sex: Male

DRUGS (8)
  1. AMLODIPINE [Concomitant]
  2. OMEPRAZOLE [Concomitant]
  3. IBUPROFEN [Suspect]
  4. GABAPENTIN [Concomitant]
  5. DICLOFENAC SODIUM [Suspect]
     Indication: ARTHRALGIA
     Dosage: 50 MG, TID, PO
     Route: 048
     Dates: start: 20110101, end: 20110203
  6. METFORMIN HCL [Concomitant]
  7. IBUPROFEN [Suspect]
     Indication: ARTHRALGIA
     Dosage: 600 MG, TID, PO
     Route: 048
     Dates: start: 20110204, end: 20110209
  8. CODEINE [Concomitant]

REACTIONS (7)
  - BLOOD UREA INCREASED [None]
  - DUODENAL ULCER [None]
  - MELAENA [None]
  - BLOOD CREATININE INCREASED [None]
  - GASTRITIS EROSIVE [None]
  - HAEMATEMESIS [None]
  - HAEMOGLOBIN DECREASED [None]
